FAERS Safety Report 6520110-2 (Version None)
Quarter: 2009Q4

REPORT INFORMATION
  Report Type: 
  Country: None (occurrence: None)
  Receive Date: 20091229
  Receipt Date: 20091217
  Transmission Date: 20100525
  Serious: Yes (Hospitalization)
  Sender: FDA-Public Use
  Company Number: PHHY2009CA56817

PATIENT
  Sex: Female

DRUGS (2)
  1. DIOVAN [Suspect]
     Dosage: 1 TABLET/DAY
     Route: 048
     Dates: start: 20091118
  2. DIOVAN [Suspect]
     Dosage: 2 TABLETS/DAY
     Route: 048
     Dates: start: 20091217

REACTIONS (1)
  - HYSTERECTOMY [None]
